FAERS Safety Report 23545247 (Version 1)
Quarter: 2024Q1

REPORT INFORMATION
  Report Type: Spontaneous
  Country: US (occurrence: US)
  Receive Date: 20240220
  Receipt Date: 20240220
  Transmission Date: 20240410
  Serious: No
  Sender: FDA-Public Use
  Company Number: US-ELI_LILLY_AND_COMPANY-US202402010475

PATIENT
  Sex: Female

DRUGS (1)
  1. ALIMTA [Suspect]
     Active Substance: PEMETREXED DISODIUM
     Indication: Peritoneal mesothelioma malignant
     Dosage: UNK UNK, UNKNOWN
     Route: 065

REACTIONS (4)
  - Off label use [Unknown]
  - Abdominal pain [Unknown]
  - Nausea [Unknown]
  - Fatigue [Unknown]
